FAERS Safety Report 4786861-5 (Version None)
Quarter: 2005Q3

REPORT INFORMATION
  Report Type: 
  Country: None (occurrence: None)
  Receive Date: 20050930
  Receipt Date: 20050816
  Transmission Date: 20060218
  Serious: No
  Sender: FDA-Public Use
  Company Number: A001-412-3822

PATIENT
  Age: 84 Year
  Sex: Male
  Weight: 77 kg

DRUGS (11)
  1. DONEPEZIL HCL [Suspect]
     Indication: COGNITIVE DISORDER
     Dosage: DOUBLEBLIND, 1 IN 1 D, ORAL
     Route: 048
     Dates: start: 20040823, end: 20041006
  2. DONEPEZIL HCL [Suspect]
     Indication: COGNITIVE DISORDER
     Dosage: DOUBLEBLIND, 1 IN 1 D, ORAL
     Route: 048
     Dates: start: 20041007, end: 20050726
  3. SUPER AYTONA [Concomitant]
  4. ASPIRINE (ACETYLSLICYLIC ACID) [Concomitant]
  5. VITAMIN B6 [Concomitant]
  6. LIPITOR [Concomitant]
  7. VITAMIN C (ASCORBIC ACID) [Concomitant]
  8. GLUCOSAMINE (GLUCOSAMINE) [Concomitant]
  9. CHONDROITIN (CHONDROITIN SULFATE SODIUM) [Concomitant]
  10. LISINOPRIL [Concomitant]
  11. VITAMIN E [Concomitant]

REACTIONS (2)
  - LIVER DISORDER [None]
  - NEUROENDOCRINE CARCINOMA [None]
